FAERS Safety Report 4639508-2 (Version None)
Quarter: 2005Q2

REPORT INFORMATION
  Report Type: 
  Country: None (occurrence: None)
  Receive Date: 20050418
  Receipt Date: 20050405
  Transmission Date: 20051028
  Serious: Yes (Life-Threatening, Hospitalization)
  Sender: FDA-Public Use
  Company Number: 2005048710

PATIENT
  Age: 81 Year
  Sex: Female

DRUGS (8)
  1. ALDACTONE [Suspect]
     Indication: CARDIAC FAILURE
     Dosage: 25 MG, DAILY, ORAL
     Route: 048
     Dates: end: 20041103
  2. PERINDOPRIL (PERINDOPRIL) [Suspect]
     Indication: CARDIAC FAILURE
     Dosage: 4 MG (4 MG, EVERY DAY), ORAL
     Route: 048
     Dates: end: 20041103
  3. DIGOXIN [Suspect]
     Indication: ILL-DEFINED DISORDER
     Dosage: ORAL
     Route: 048
     Dates: end: 20041103
  4. FLUINDIONE (FLUINDIONE) [Concomitant]
  5. FUROSEMIDE [Concomitant]
  6. ATORVASTATIN CALCIUM [Concomitant]
  7. MIANSERIN HYDROCHLORIDE (MIANSERIN HYDROCHLORIDE) [Concomitant]
  8. CYAMEMAZINE (CYAMEMAZINE) [Concomitant]

REACTIONS (11)
  - BRADYCARDIA [None]
  - CARDIOACTIVE DRUG LEVEL INCREASED [None]
  - DIALYSIS [None]
  - HYPERKALAEMIA [None]
  - HYPERPHOSPHATASAEMIA [None]
  - HYPONATRAEMIA [None]
  - METABOLIC ACIDOSIS [None]
  - OVERDOSE [None]
  - RENAL FAILURE ACUTE [None]
  - RESPIRATORY DISTRESS [None]
  - TORSADE DE POINTES [None]
